FAERS Safety Report 8881454 (Version 2)
Quarter: 2013Q3

REPORT INFORMATION
  Report Type: Report from Study
  Country: ES (occurrence: ES)
  Receive Date: 20121101
  Receipt Date: 20130710
  Transmission Date: 20140515
  Serious: Yes (Death, Hospitalization)
  Sender: FDA-Public Use
  Company Number: ES-ROCHE-1151271

PATIENT
  Age: 47 Year
  Sex: Female
  Weight: 51 kg

DRUGS (6)
  1. PERTUZUMAB [Suspect]
     Indication: BREAST CANCER METASTATIC
     Route: 042
     Dates: start: 20120919, end: 20121011
  2. TRASTUZUMAB [Concomitant]
     Indication: BREAST CANCER METASTATIC
     Route: 042
     Dates: start: 20120919, end: 20121011
  3. FENTANYL [Concomitant]
     Indication: PAIN
     Route: 058
     Dates: start: 20120521, end: 20121121
  4. ESCITALOPRAM [Concomitant]
     Indication: ANXIETY
     Route: 048
     Dates: start: 20120521, end: 20121121
  5. OMEPRAZOL [Concomitant]
     Route: 048
     Dates: start: 20120521, end: 20121125
  6. LEXATIN (SPAIN) [Concomitant]
     Indication: INSOMNIA
     Route: 048
     Dates: start: 20120521, end: 20121121

REACTIONS (3)
  - Hepatic function abnormal [Fatal]
  - Drug ineffective [Fatal]
  - Hepatic encephalopathy [Unknown]
